FAERS Safety Report 17446158 (Version 1)
Quarter: 2020Q1

REPORT INFORMATION
  Report Type: Spontaneous
  Country: US (occurrence: US)
  Receive Date: 20200221
  Receipt Date: 20200221
  Transmission Date: 20200409
  Serious: No
  Sender: FDA-Public Use
  Company Number: US-SA-2020SA045711

PATIENT
  Sex: Female

DRUGS (2)
  1. ARAVA [Suspect]
     Active Substance: LEFLUNOMIDE
  2. UPADACITINIB [Suspect]
     Active Substance: UPADACITINIB
     Route: 048

REACTIONS (2)
  - Oral herpes [Not Recovered/Not Resolved]
  - Skin ulcer [Not Recovered/Not Resolved]
